FAERS Safety Report 9937908 (Version 1)
Quarter: 2014Q1

REPORT INFORMATION
  Report Type: Spontaneous
  Country: US (occurrence: US)
  Receive Date: 20140303
  Receipt Date: 20140303
  Transmission Date: 20141002
  Serious: No
  Sender: FDA-Public Use
  Company Number: US-BIOGENIDEC-2014BI016879

PATIENT
  Age: 65 Year
  Sex: Female

DRUGS (10)
  1. TECFIDERA [Suspect]
     Indication: MULTIPLE SCLEROSIS
     Route: 048
  2. ALLEGRA ALLERGY [Concomitant]
     Indication: HYPERSENSITIVITY
  3. ASPIRIN EC LO-DOSE [Concomitant]
  4. DIAZEPAM [Concomitant]
  5. FLONASE [Concomitant]
  6. IBUPROFEN [Concomitant]
  7. LEVOTHYROXINE SODIUM [Concomitant]
  8. PROZAC [Concomitant]
  9. VITAMIN C [Concomitant]
  10. VITAMIN D3 [Concomitant]

REACTIONS (1)
  - Hyperhidrosis [Unknown]
